FAERS Safety Report 6675238-3 (Version None)
Quarter: 2010Q2

REPORT INFORMATION
  Report Type: 
  Country: None (occurrence: None)
  Receive Date: 20100409
  Receipt Date: 20100330
  Transmission Date: 20101027
  Serious: Yes (Hospitalization)
  Sender: FDA-Public Use
  Company Number: JP-BAYER-201010110BYL

PATIENT
  Age: 43 Year
  Sex: Female
  Weight: 51 kg

DRUGS (6)
  1. BETAFERON [Suspect]
     Indication: MULTIPLE SCLEROSIS
     Dosage: TOTAL DAILY DOSE: 8 MIU  UNIT DOSE: 9.6 MIU
     Route: 058
     Dates: start: 20030101
  2. DESMOPRESSIN ACETATE [Suspect]
     Indication: DYSURIA
     Dosage: 2-3 TIMES/DAY
     Route: 045
     Dates: start: 20090201
  3. KETAS [Concomitant]
     Indication: DIZZINESS
     Dosage: UNIT DOSE: 10 MG
     Route: 048
  4. TIZANIDINE HCL [Concomitant]
     Indication: SPASTIC PARALYSIS
     Dosage: UNIT DOSE: 1 MG
     Route: 048
  5. VESICARE [Concomitant]
     Indication: DYSURIA
     Dosage: UNIT DOSE: 5 MG
     Route: 048
  6. BEZATOL SR [Concomitant]
     Indication: LIPIDS ABNORMAL
     Dosage: UNIT DOSE: 200 MG
     Route: 048

REACTIONS (2)
  - NEPHROSCLEROSIS [None]
  - RETINAL EXUDATES [None]
